FAERS Safety Report 7410746-9 (Version None)
Quarter: 2011Q2

REPORT INFORMATION
  Report Type: 
  Country: None (occurrence: None)
  Receive Date: 20110405
  Receipt Date: 20110323
  Transmission Date: 20111010
  Serious: Yes (Other)
  Sender: FDA-Public Use
  Company Number: DKLU1069343

PATIENT
  Sex: Female

DRUGS (2)
  1. INDOCIN [Suspect]
     Indication: PATENT DUCTUS ARTERIOSUS
     Dosage: 0.1 MG/KG MILLIGRAM(S)/KILOGRAM, TOTAL OF 6 TIMES (3 COURSES), INTRAVENOUS (NOT OTHERWISE SPECIFIED)
     Route: 042
  2. DOPAMINE (DOPAMINE) (INJECTION) [Concomitant]

REACTIONS (2)
  - RENAL FAILURE ACUTE [None]
  - NEPHROPATHY [None]
